FAERS Safety Report 5804764-1 (Version None)
Quarter: 2008Q3

REPORT INFORMATION
  Report Type: 
  Country: None (occurrence: None)
  Receive Date: 20080707
  Receipt Date: 20080205
  Transmission Date: 20090109
  Serious: Yes (Hospitalization)
  Sender: FDA-Public Use
  Company Number: 545620

PATIENT
  Age: 41 Year
  Sex: Female

DRUGS (8)
  1. MYCOPHENOLATE MOFETIL [Suspect]
     Indication: SYSTEMIC LUPUS ERYTHEMATOSUS
     Dosage: 2000 GRAM DAILY 1 PER DAY ORAL
     Route: 048
     Dates: start: 20070924
  2. BLINDED ABATACEPT (BLINDED ABATACEPT) [Suspect]
     Indication: SYSTEMIC LUPUS ERYTHEMATOSUS
     Dosage: INTRAVENOUS
     Route: 042
     Dates: start: 20070924
  3. PREDNISONE [Suspect]
     Indication: SYSTEMIC LUPUS ERYTHEMATOSUS
     Dosage: 5 MG DAILY 1 PER DAY ORAL
     Route: 048
     Dates: start: 20080104
  4. ENALAPRIL MALEATE [Concomitant]
  5. SERTRALINE HCL [Concomitant]
  6. CLONAZEPAM [Concomitant]
  7. CALCIUM CARBONATE (CALCIUM CARBONATE) [Concomitant]
  8. 1 CONCOMITANT DRUG (GENERIC UNKNOWN) [Concomitant]

REACTIONS (1)
  - UPPER RESPIRATORY TRACT INFECTION [None]
